FAERS Safety Report 7960082-7 (Version None)
Quarter: 2011Q4

REPORT INFORMATION
  Report Type: 
  Country: None (occurrence: None)
  Receive Date: 20111206
  Receipt Date: 20111130
  Transmission Date: 20120403
  Serious: Yes (Other)
  Sender: FDA-Public Use
  Company Number: CHPA2011US017230

PATIENT
  Sex: Female

DRUGS (3)
  1. BENEFIBER W/ WHEAT DEXTRIN [Suspect]
     Indication: CONSTIPATION
     Dosage: 12 OUNCES PER DAY
     Route: 048
     Dates: start: 20110701
  2. LIPITOR [Concomitant]
  3. PLAVIX [Concomitant]

REACTIONS (6)
  - OVERDOSE [None]
  - CHEST PAIN [None]
  - REBOUND EFFECT [None]
  - DYSPNOEA [None]
  - THERAPEUTIC RESPONSE UNEXPECTED [None]
  - OFF LABEL USE [None]
